FAERS Safety Report 9350035 (Version 1)
Quarter: 2013Q2

REPORT INFORMATION
  Report Type: Report from Study
  Country: JP (occurrence: JP)
  Receive Date: 20130615
  Receipt Date: 20130615
  Transmission Date: 20140414
  Serious: Yes (Other)
  Sender: FDA-Public Use
  Company Number: JP-ROCHE-1233538

PATIENT
  Sex: 0

DRUGS (9)
  1. BEVACIZUMAB [Suspect]
     Indication: NON-SMALL CELL LUNG CANCER
     Dosage: FOR 4 CYCLES
     Route: 065
  2. BEVACIZUMAB [Suspect]
     Dosage: MAINTENANCE THERAPY
     Route: 065
  3. CARBOPLATIN [Suspect]
     Indication: NON-SMALL CELL LUNG CANCER
     Dosage: AUC= 6(MG/L). HR
     Route: 065
  4. PACLITAXEL [Suspect]
     Indication: NON-SMALL CELL LUNG CANCER
     Route: 065
  5. APREPITANT [Concomitant]
     Route: 048
  6. APREPITANT [Concomitant]
     Route: 048
  7. DEXAMETHASONE [Concomitant]
     Route: 042
  8. RANITIDINE [Concomitant]
     Route: 042
  9. GRANISETRON [Concomitant]
     Route: 065

REACTIONS (40)
  - White blood cell count decreased [Unknown]
  - Neutrophil count decreased [Unknown]
  - Anaemia [Unknown]
  - Platelet count decreased [Unknown]
  - Hyponatraemia [Unknown]
  - Hypokalaemia [Unknown]
  - Hypertension [Unknown]
  - Febrile neutropenia [Unknown]
  - Nausea [Unknown]
  - Vomiting [Unknown]
  - Decreased appetite [Unknown]
  - Diarrhoea [Unknown]
  - Neuropathy peripheral [Unknown]
  - Stomatitis [Unknown]
  - Cheilitis [Unknown]
  - Rash maculo-papular [Unknown]
  - Pruritus [Unknown]
  - Large intestine perforation [Unknown]
  - Embolism [Unknown]
  - Aspartate aminotransferase increased [Unknown]
  - Alanine aminotransferase increased [Unknown]
  - Gamma-glutamyltransferase increased [Unknown]
  - Blood creatinine increased [Unknown]
  - Hyperkalaemia [Unknown]
  - International normalised ratio increased [Unknown]
  - Proteinuria [Unknown]
  - Epistaxis [Unknown]
  - Haemorrhoidal haemorrhage [Unknown]
  - Haematuria [Unknown]
  - Dysgeusia [Unknown]
  - Constipation [Unknown]
  - Malaise [Unknown]
  - Myalgia [Unknown]
  - Arthralgia [Unknown]
  - Alopecia [Unknown]
  - Skin disorder [Unknown]
  - Hiccups [Unknown]
  - Oedema peripheral [Unknown]
  - Transient ischaemic attack [Unknown]
  - Fatigue [Unknown]
